FAERS Safety Report 12957952 (Version 3)
Quarter: 2016Q4

REPORT INFORMATION
  Report Type: Spontaneous
  Country: JP (occurrence: JP)
  Receive Date: 20161119
  Receipt Date: 20161209
  Transmission Date: 20170207
  Serious: Yes (Other)
  Sender: FDA-Public Use
  Company Number: JP-009507513-1611JPN005982

PATIENT
  Sex: Male

DRUGS (1)
  1. MENESIT TABLETS - 100 [Suspect]
     Active Substance: CARBIDOPA\LEVODOPA
     Indication: PARKINSON^S DISEASE
     Dosage: 150 MG, TID, EVERY 150 MG IN THE MORNING, AFTERNOON AND EVENING
     Route: 048

REACTIONS (2)
  - Akinesia [Unknown]
  - Muscle rigidity [Unknown]
